FAERS Safety Report 9838240 (Version 2)
Quarter: 2014Q2

REPORT INFORMATION
  Report Type: Spontaneous
  Country: US (occurrence: None)
  Receive Date: 20131205
  Receipt Date: 20140416
  Transmission Date: 20141212
  Serious: Yes (Other)
  Sender: FDA-Public Use
  Company Number: 163-POMAL-13100475

PATIENT
  Age: 63 Year
  Sex: Female
  Weight: 106.6 kg

DRUGS (18)
  1. POMALYST (POMALIDOMIDE) (1 MILLIGRAM, CAPSULES) [Suspect]
     Indication: PLASMA CELL MYELOMA
     Dosage: 1 MG, 21 IN 21 D, PO
     Route: 048
     Dates: start: 20130906
  2. ACETYL L-CARNITINE (ACETYLCARNITINE) [Concomitant]
  3. CALCIUM (CALCIUM) [Concomitant]
  4. VITAMIN E (TOCOPHEROL) [Concomitant]
  5. CLARITHROMYCIN [Concomitant]
  6. METOPROLOL SUCCINATE [Concomitant]
  7. ISOSORBIDE MONITRATE [Concomitant]
  8. DEXAMETHASONE [Concomitant]
  9. PRAVASTATIN SODIUM [Concomitant]
  10. KLOR-CON (POTASSIUM CHLORIDE) UNKNOWN [Concomitant]
  11. COMBIVENT RESPIMAT (COMBIVENT) [Concomitant]
  12. HYDRALAZINE HCL (HYDRALAZINE HYDROCHLORIDE) [Concomitant]
  13. OMEPRAZOLE [Concomitant]
  14. TORSEMIDE [Concomitant]
  15. TOPROL XL (METOPROLO SUCCINATE) [Concomitant]
  16. SPIRONOLACTONE [Concomitant]
  17. CYCLOBENZAPRINE HCL (CYCLOBENZAPRINE HYDROCHLORIDE) [Concomitant]
  18. GABAPENTIN [Concomitant]

REACTIONS (4)
  - Burning sensation [None]
  - Back pain [None]
  - Muscle spasms [None]
  - Increased tendency to bruise [None]
